FAERS Safety Report 5499398-5 (Version None)
Quarter: 2007Q4

REPORT INFORMATION
  Report Type: 
  Country: None (occurrence: None)
  Receive Date: 20071026
  Receipt Date: 20071022
  Transmission Date: 20080405
  Serious: Yes (Hospitalization)
  Sender: FDA-Public Use
  Company Number: B0487095A

PATIENT
  Age: 87 Year
  Sex: Female

DRUGS (5)
  1. ARIXTRA [Suspect]
     Indication: THROMBOSIS PROPHYLAXIS
     Dosage: 2.5MG PER DAY
     Route: 058
     Dates: start: 20070903, end: 20070904
  2. ASPIRIN [Suspect]
     Indication: DRUG USE FOR UNKNOWN INDICATION
     Route: 048
     Dates: end: 20070829
  3. EPADEL [Concomitant]
     Dosage: 600MG THREE TIMES PER DAY
     Route: 048
  4. DIART [Concomitant]
     Route: 048
  5. CALBLOCK [Concomitant]
     Route: 048

REACTIONS (1)
  - OEDEMA PERIPHERAL [None]
